FAERS Safety Report 15466267 (Version 1)
Quarter: 2018Q4

REPORT INFORMATION
  Report Type: Spontaneous
  Country: RU (occurrence: RU)
  Receive Date: 20181004
  Receipt Date: 20181004
  Transmission Date: 20190204
  Serious: Yes (Death, Hospitalization, Other)
  Sender: FDA-Public Use
  Company Number: RU-JNJFOC-20180904532

PATIENT
  Age: 53 Year
  Sex: Female
  Weight: 45 kg

DRUGS (5)
  1. IBRUTINIB [Suspect]
     Active Substance: IBRUTINIB
     Indication: CHRONIC LYMPHOCYTIC LEUKAEMIA
     Route: 048
  2. IBRUTINIB [Suspect]
     Active Substance: IBRUTINIB
     Indication: CHRONIC LYMPHOCYTIC LEUKAEMIA
     Route: 048
     Dates: start: 20170101
  3. IBRUTINIB [Suspect]
     Active Substance: IBRUTINIB
     Indication: CHRONIC LYMPHOCYTIC LEUKAEMIA
     Dosage: 2-1 CAPS./DAY
     Route: 048
  4. IBRUTINIB [Suspect]
     Active Substance: IBRUTINIB
     Indication: CHRONIC LYMPHOCYTIC LEUKAEMIA
     Dosage: 2-1 CAPS./DAY
     Route: 048
  5. PRIVIGEN [Concomitant]
     Active Substance: HUMAN IMMUNOGLOBULIN G
     Route: 042

REACTIONS (21)
  - Interstitial lung disease [Unknown]
  - Productive cough [Unknown]
  - Herpes virus infection [Unknown]
  - Sepsis [Fatal]
  - Dyspnoea [Unknown]
  - Abdominal discomfort [Unknown]
  - Haemorrhagic diathesis [Unknown]
  - Diarrhoea [Unknown]
  - Leukocytosis [Unknown]
  - Chronic lymphocytic leukaemia [Fatal]
  - Haemorrhagic erosive gastritis [Unknown]
  - Anaemia [Unknown]
  - Abdominal pain [Unknown]
  - Genitourinary tract infection [Unknown]
  - Pyrexia [Unknown]
  - Abdominal pain upper [Unknown]
  - Respiratory disorder [Unknown]
  - Infection [Unknown]
  - Haemorrhoids [Unknown]
  - Cardiac failure [Unknown]
  - Asthenia [Unknown]

NARRATIVE: CASE EVENT DATE: 2017
